FAERS Safety Report 8505103-8 (Version None)
Quarter: 2012Q3

REPORT INFORMATION
  Report Type: 
  Country: None (occurrence: None)
  Receive Date: 20120712
  Receipt Date: 20120709
  Transmission Date: 20120928
  Serious: Yes (Life-Threatening, Other)
  Sender: FDA-Public Use
  Company Number: PHHY2012FR059087

PATIENT
  Sex: Male

DRUGS (21)
  1. BACLOFEN [Concomitant]
     Dosage: 2 DF, TID
     Dates: start: 20120215
  2. ALFUZOSIN HYDROCHLORIDE [Concomitant]
     Dosage: 1 DF, DAILY
     Dates: start: 20120223
  3. RANITIDINE [Concomitant]
     Dosage: 150 MG, UNK
     Route: 048
     Dates: start: 20120322, end: 20120413
  4. PERIACTIN [Concomitant]
     Dosage: 1 DF, BID
     Route: 048
     Dates: start: 20120405
  5. TRANXENE [Suspect]
     Dosage: 1 DF, DAILY
     Dates: start: 20120224, end: 20120525
  6. ESCITALOPRAM [Concomitant]
     Dosage: 1 DF, DAILY
     Dates: start: 20120321
  7. BACLOFEN [Concomitant]
     Dosage: 1 DF, TID
     Dates: start: 20120404
  8. RANITIDINE [Concomitant]
     Dosage: 300 MG, UNK
     Route: 048
     Dates: start: 20120413
  9. TEGRETOL [Suspect]
     Dosage: 3 DF, DAILY
     Route: 048
     Dates: start: 20120512, end: 20120525
  10. ACETAMINOPHEN [Concomitant]
     Dosage: 2 DF, TID
     Route: 048
     Dates: start: 20120322
  11. LOVENOX [Concomitant]
     Dosage: 0.4 ML PER INJECTION, DAILY
     Route: 058
     Dates: start: 20120215
  12. NEURONTIN [Concomitant]
     Dosage: 600 MG, UNK
     Route: 048
     Dates: start: 20120215
  13. MIDODRINE HYDROCHLORIDE [Concomitant]
     Dosage: 10DF IN THE MORNING AND 4DF IN THE EVENING
     Route: 048
     Dates: start: 20120215
  14. ACETAMINOPHEN [Concomitant]
     Dosage: 1.5 DF, DAILY
     Dates: start: 20120526
  15. IMOVANE [Concomitant]
     Dosage: 1 DF, DAILY
     Dates: start: 20120215
  16. TEGRETOL [Suspect]
     Dosage: 1.5 DF, UNK
     Route: 048
     Dates: start: 20120303
  17. AMOXICILLIN [Suspect]
     Dosage: 1 G, TID
     Route: 048
     Dates: start: 20120522, end: 20120525
  18. ATARAX [Concomitant]
     Dosage: 1 DF, DAILY
     Route: 048
     Dates: start: 20120404
  19. ACETAMINOPHEN [Concomitant]
     Dosage: 500 MG, DAILY
     Dates: start: 20120404
  20. MIDODRINE HYDROCHLORIDE [Concomitant]
     Dosage: 4DF IN THE MORNING AND 3DF IN THE EVENING
     Route: 048
     Dates: start: 20120515
  21. ACETAMINOPHEN [Concomitant]
     Dosage: 1 DF, BID
     Dates: start: 20120215, end: 20120526

REACTIONS (6)
  - PYELONEPHRITIS [None]
  - HYPERTHERMIA [None]
  - CHILLS [None]
  - HAEMOGLOBIN DECREASED [None]
  - PLATELET COUNT DECREASED [None]
  - NEUTROPENIA [None]
